FAERS Safety Report 6318273-7 (Version None)
Quarter: 2009Q3

REPORT INFORMATION
  Report Type: 
  Country: None (occurrence: None)
  Receive Date: 20090821
  Receipt Date: 20090811
  Transmission Date: 20100115
  Serious: Yes (Hospitalization, Other)
  Sender: FDA-Public Use
  Company Number: US-ABBOTT-09P-163-0590760-00

PATIENT
  Sex: Male

DRUGS (5)
  1. DEPAKOTE [Suspect]
     Indication: BIPOLAR DISORDER
     Route: 048
     Dates: start: 19990101
  2. DEPAKOTE [Suspect]
     Route: 048
  3. DEPAKOTE [Suspect]
     Dosage: MANY DIFFERENT DOSES
     Route: 048
     Dates: start: 20090701
  4. ASPIRIN [Suspect]
     Indication: DRUG USE FOR UNKNOWN INDICATION
     Route: 048
  5. ABILIFY [Concomitant]
     Indication: BIPOLAR DISORDER

REACTIONS (7)
  - ABNORMAL BEHAVIOUR [None]
  - BIPOLAR I DISORDER [None]
  - DIALYSIS [None]
  - DRUG LEVEL FLUCTUATING [None]
  - INCORRECT DRUG ADMINISTRATION DURATION [None]
  - PARANOIA [None]
  - TREATMENT NONCOMPLIANCE [None]
